FAERS Safety Report 15409825 (Version 1)
Quarter: 2018Q3

REPORT INFORMATION
  Report Type: Spontaneous
  Country: DE (occurrence: DE)
  Receive Date: 20180920
  Receipt Date: 20180920
  Transmission Date: 20181010
  Serious: Yes (Congenital Anomaly, Other)
  Sender: FDA-Public Use
  Company Number: DE-AMGEN-DEUSP2018130095

PATIENT
  Sex: Female
  Weight: 3.22 kg

DRUGS (4)
  1. PREDNISOLONE. [Suspect]
     Active Substance: PREDNISOLONE
     Indication: EXPOSURE DURING PREGNANCY
     Dosage: 5 [MG/D ]
     Route: 064
     Dates: start: 20170510, end: 20180209
  2. L?THYROXIN [Concomitant]
     Active Substance: LEVOTHYROXINE SODIUM
     Indication: EXPOSURE DURING PREGNANCY
     Dosage: 75 [MUG/D ]
     Route: 064
     Dates: start: 20170510, end: 20180209
  3. FOLIO FORTE [Concomitant]
     Active Substance: FOLIC ACID\VITAMINS
     Indication: EXPOSURE DURING PREGNANCY
     Dosage: 0.8 [MG/D ]
     Route: 064
     Dates: start: 20170510, end: 20180209
  4. ENBREL [Suspect]
     Active Substance: ETANERCEPT
     Indication: EXPOSURE DURING PREGNANCY
     Dosage: 50 [MG/D (1X EVERY10D)]
     Route: 064

REACTIONS (3)
  - Neonatal asphyxia [Recovered/Resolved]
  - Talipes [Recovered/Resolved with Sequelae]
  - Maternal exposure during pregnancy [Unknown]

NARRATIVE: CASE EVENT DATE: 20180209
